FAERS Safety Report 10026887 (Version 2)
Quarter: 2014Q1

REPORT INFORMATION
  Report Type: Spontaneous
  Country: CA (occurrence: CA)
  Receive Date: 20140321
  Receipt Date: 20140321
  Transmission Date: 20141002
  Serious: Yes (Hospitalization, Other)
  Sender: FDA-Public Use
  Company Number: CA-AMGEN-CANSP2011054151

PATIENT
  Age: 62 Year
  Sex: Male

DRUGS (7)
  1. ENBREL [Suspect]
     Indication: ANKYLOSING SPONDYLITIS
     Dosage: 50 MG, QWK
     Route: 065
     Dates: start: 20040419
  2. SYNTHROID [Concomitant]
     Dosage: UNK
  3. CYCLOPRINE [Concomitant]
     Dosage: 10 MG, UNK
  4. ZOPICLON [Concomitant]
     Dosage: 7.5 MG, UNK
  5. PREDNISONE [Concomitant]
     Dosage: 5 MG, QD
  6. VOLTAREN                           /00372301/ [Concomitant]
     Dosage: UNK
  7. OXYCODONE [Concomitant]
     Dosage: 5 MG, QD

REACTIONS (9)
  - Bladder cancer [Unknown]
  - Dry eye [Not Recovered/Not Resolved]
  - Abdominal pain upper [Not Recovered/Not Resolved]
  - Tendon pain [Not Recovered/Not Resolved]
  - Musculoskeletal pain [Not Recovered/Not Resolved]
  - Abdominal distension [Not Recovered/Not Resolved]
  - Foot operation [Recovered/Resolved]
  - Hip arthroplasty [Unknown]
  - Condition aggravated [Unknown]
